FAERS Safety Report 20628634 (Version 2)
Quarter: 2022Q3

REPORT INFORMATION
  Report Type: Report from Study
  Country: US (occurrence: US)
  Receive Date: 20220323
  Receipt Date: 20220930
  Transmission Date: 20221026
  Serious: Yes (Hospitalization)
  Sender: FDA-Public Use
  Company Number: US-TAKEDA-2022TUS017963

PATIENT
  Sex: Female
  Weight: 88 kg

DRUGS (8)
  1. HUMAN IMMUNOGLOBULIN G [Suspect]
     Active Substance: HUMAN IMMUNOGLOBULIN G
     Indication: Immunodeficiency common variable
     Dosage: 10 GRAM, 1/WEEK
     Route: 058
     Dates: start: 20130901
  2. EPINEPHRINE [Concomitant]
     Active Substance: EPINEPHRINE
  3. LIDOCAINE\PRILOCAINE [Concomitant]
     Active Substance: LIDOCAINE\PRILOCAINE
  4. VITAMIN D3 [Concomitant]
     Active Substance: CHOLECALCIFEROL
  5. LUTEIN [Concomitant]
     Active Substance: LUTEIN
  6. VITAMINS [Concomitant]
     Active Substance: VITAMINS
  7. COLLAGEN [Concomitant]
     Active Substance: COLLAGEN
  8. BIOTIN [Concomitant]
     Active Substance: BIOTIN

REACTIONS (2)
  - Hip arthroplasty [Unknown]
  - Multiple allergies [Unknown]
